FAERS Safety Report 8888312 (Version 2)
Quarter: 2012Q4

REPORT INFORMATION
  Report Type: 
  Country: US (occurrence: US)
  Receive Date: 20121106
  Receipt Date: 20121112
  Transmission Date: 20130627
  Serious: Yes (Other)
  Sender: FDA-Public Use
  Company Number: US-PFIZER INC-2012274861

PATIENT
  Age: 53 Year
  Sex: Female
  Weight: 79.37 kg

DRUGS (7)
  1. EFFEXOR XR [Suspect]
     Indication: DEPRESSION
     Dosage: 75 mg, 3x/day
     Route: 048
     Dates: end: 201210
  2. EFFEXOR XR [Suspect]
     Dosage: 75 mg, UNK
  3. PRISTIQ [Suspect]
     Indication: DEPRESSION
     Dosage: 100 mg, 1x/day
     Route: 048
     Dates: start: 201210, end: 201210
  4. PRISTIQ [Suspect]
     Dosage: 100 mg, 1x/day
     Route: 048
     Dates: start: 20121102
  5. NEXIUM [Concomitant]
     Indication: ACID REFLUX (OESOPHAGEAL)
     Dosage: UNK
  6. WELLBUTRIN [Concomitant]
     Dosage: UNK
  7. WELLBUTRIN [Concomitant]
     Dosage: UNK

REACTIONS (11)
  - Cerebral vasoconstriction [Not Recovered/Not Resolved]
  - Disorientation [Not Recovered/Not Resolved]
  - Thinking abnormal [Not Recovered/Not Resolved]
  - Blood triglycerides increased [Unknown]
  - Blood cholesterol increased [Unknown]
  - Energy increased [Unknown]
  - Therapeutic response unexpected [Unknown]
  - Feeling abnormal [Not Recovered/Not Resolved]
  - Expired drug administered [Unknown]
  - Drug effect incomplete [Unknown]
  - Oropharyngeal pain [Unknown]
